FAERS Safety Report 10076574 (Version 2)
Quarter: 2014Q2

REPORT INFORMATION
  Report Type: Spontaneous
  Country: US (occurrence: US)
  Receive Date: 20140414
  Receipt Date: 20140506
  Transmission Date: 20141212
  Serious: Yes (Other)
  Sender: FDA-Public Use
  Company Number: US-PFIZER INC-2014102894

PATIENT
  Age: 41 Year
  Sex: Female

DRUGS (7)
  1. PRISTIQ [Suspect]
     Indication: ANXIETY
     Dosage: 50 MG, DAILY
     Route: 048
     Dates: start: 20120807, end: 20130215
  2. PRISTIQ [Suspect]
     Indication: PANIC ATTACK
     Dosage: 100 MG, DAILY
     Route: 048
     Dates: start: 20130312
  3. TYLENOL [Suspect]
     Dosage: UNK
  4. CLARIPRIN [Suspect]
     Dosage: UNK
  5. CODEINE [Suspect]
     Dosage: UNK
  6. KLONOPIN [Suspect]
     Indication: ANXIETY
     Dosage: 1MG, 2X/DAY
     Dates: start: 20110504
  7. KLONOPIN [Suspect]
     Indication: PANIC ATTACK
     Dosage: 0.5 -1 MG HS
     Dates: start: 20130208, end: 20130531

REACTIONS (2)
  - Convulsion [Recovered/Resolved]
  - Drug hypersensitivity [Unknown]
